FAERS Safety Report 23177437 (Version 1)
Quarter: 2023Q4

REPORT INFORMATION
  Report Type: Report from Study
  Country: IT (occurrence: IT)
  Receive Date: 20231113
  Receipt Date: 20231113
  Transmission Date: 20240109
  Serious: Yes (Other)
  Sender: FDA-Public Use
  Company Number: None

PATIENT
  Age: 72 Year
  Sex: Female

DRUGS (5)
  1. ATENOLOL\CHLORTHALIDONE [Suspect]
     Active Substance: ATENOLOL\CHLORTHALIDONE
     Indication: Hypertension
     Dosage: 1 DOSAGE FORM, QD (1TAB/DAY)
     Route: 065
     Dates: start: 20230101, end: 20230916
  2. NIFEDIPINE [Suspect]
     Active Substance: NIFEDIPINE
     Indication: Hypertension
     Dosage: 1 DOSAGE FORM, QD (1TAB/DAY)
     Route: 065
     Dates: start: 20230101, end: 20230916
  3. RAMIPRIL [Concomitant]
     Active Substance: RAMIPRIL
     Dosage: UNK
     Route: 065
  4. VALSARTAN [Concomitant]
     Active Substance: VALSARTAN
     Dosage: UNK
     Route: 065
  5. FUROSEMIDE [Concomitant]
     Active Substance: FUROSEMIDE
     Dosage: UNK
     Route: 065

REACTIONS (2)
  - Sinus bradycardia [Recovering/Resolving]
  - Overdose [Unknown]

NARRATIVE: CASE EVENT DATE: 20230916
